FAERS Safety Report 16548665 (Version 1)
Quarter: 2019Q3

REPORT INFORMATION
  Report Type: Spontaneous
  Country: US (occurrence: US)
  Receive Date: 20190709
  Receipt Date: 20190709
  Transmission Date: 20191004
  Serious: No
  Sender: FDA-Public Use
  Company Number: US-IBSA PHARMA-TSO-2019-0022

PATIENT
  Age: 30 Year
  Sex: Female

DRUGS (1)
  1. TIROSINT-SOL [Suspect]
     Active Substance: LEVOTHYROXINE SODIUM
     Indication: PRODUCT USED FOR UNKNOWN INDICATION
     Dosage: 75MCG/ML ONE AMPULE IN THE MORNING
     Route: 048
     Dates: start: 20190404, end: 20190404

REACTIONS (6)
  - Headache [Unknown]
  - Pain [Unknown]
  - Tinnitus [Unknown]
  - Nausea [Unknown]
  - Asthenia [Unknown]
  - Flushing [Unknown]

NARRATIVE: CASE EVENT DATE: 20190404
